FAERS Safety Report 6128208-8 (Version None)
Quarter: 2009Q1

REPORT INFORMATION
  Report Type: 
  Country: None (occurrence: None)
  Receive Date: 20090320
  Receipt Date: 20090320
  Transmission Date: 20090719
  Serious: Yes (Hospitalization, Other)
  Sender: FDA-Public Use
  Company Number: None

PATIENT
  Sex: Female
  Weight: 77.1115 kg

DRUGS (2)
  1. HEPARIN [Suspect]
     Indication: ARTHRITIS INFECTIVE
     Dosage: 4X A DAY IV
     Route: 042
     Dates: start: 20080115, end: 20080505
  2. HEPARIN [Suspect]
     Indication: THROMBOSIS
     Dosage: 2X A DAY IV
     Route: 042
     Dates: start: 20080115, end: 20080505

REACTIONS (8)
  - ERYTHEMA [None]
  - FATIGUE [None]
  - FLUSHING [None]
  - HEADACHE [None]
  - HYPERTENSION [None]
  - NEOPLASM SKIN [None]
  - SKIN DISORDER [None]
  - VOMITING [None]
